FAERS Safety Report 6501826-0 (Version None)
Quarter: 2009Q4

REPORT INFORMATION
  Report Type: 
  Country: None (occurrence: None)
  Receive Date: 20091216
  Receipt Date: 20091204
  Transmission Date: 20100525
  Serious: Yes (Other)
  Sender: FDA-Public Use
  Company Number: US-PFIZER INC-2005063311

PATIENT
  Sex: Female
  Weight: 80.726 kg

DRUGS (19)
  1. NEURONTIN [Suspect]
     Indication: RESTLESS LEGS SYNDROME
     Dosage: 600 MG, 1X/DAY
     Route: 048
  2. GABAPENTIN [Suspect]
     Dosage: 600 MG, 1X/DAY
     Route: 048
     Dates: start: 20050401, end: 20050401
  3. GLUCOTROL [Concomitant]
     Indication: DIABETES MELLITUS
     Dosage: UNK
     Route: 065
  4. GLUCOPHAGE [Concomitant]
     Indication: DIABETES MELLITUS
     Dosage: UNK
     Route: 065
  5. SYNTHROID [Concomitant]
     Dosage: UNK
     Route: 065
  6. PROVERA [Concomitant]
     Dosage: UNK
     Route: 065
  7. ESTRACE [Concomitant]
     Dosage: UNK
     Route: 065
  8. FOLIC ACID [Concomitant]
     Dosage: UNK
     Route: 065
  9. METHOTREXATE [Concomitant]
     Indication: POLYMYALGIA RHEUMATICA
     Dosage: UNK
     Route: 065
  10. MULTI-VITAMINS [Concomitant]
     Dosage: UNK
     Route: 065
  11. XALATAN [Concomitant]
     Dosage: UNK
     Route: 065
  12. ALPRAZOLAM [Concomitant]
     Indication: ABDOMINAL PAIN UPPER
     Dosage: UNK
     Route: 065
  13. LOMOTIL [Concomitant]
     Dosage: UNK
     Route: 065
  14. DILAUDID [Concomitant]
     Dosage: UNK
     Route: 065
  15. ACETAMINOPHEN W/ CODEINE [Concomitant]
     Dosage: UNK
     Route: 065
  16. PROPOXYPHENE HCL AND ACETAMINOPHEN [Concomitant]
     Dosage: UNK
     Route: 065
  17. ENTEX PSE [Concomitant]
     Dosage: UNK
     Route: 065
  18. VICODIN ES [Concomitant]
     Dosage: UNK
     Route: 065
  19. PLAVIX [Concomitant]
     Dosage: UNK

REACTIONS (9)
  - ASTHENIA [None]
  - DRUG INEFFECTIVE [None]
  - FATIGUE [None]
  - FEELING ABNORMAL [None]
  - NERVOUSNESS [None]
  - SEDATION [None]
  - SLEEP APNOEA SYNDROME [None]
  - SOMNOLENCE [None]
  - WEIGHT DECREASED [None]
